FAERS Safety Report 6744806-2 (Version None)
Quarter: 2010Q2

REPORT INFORMATION
  Report Type: 
  Country: None (occurrence: None)
  Receive Date: 20100527
  Receipt Date: 20100219
  Transmission Date: 20101027
  Serious: No
  Sender: FDA-Public Use
  Company Number: US-BRISTOL-MYERS SQUIBB COMPANY-14986012

PATIENT
  Age: 68 Year
  Sex: Female

DRUGS (5)
  1. ONGLYZA [Suspect]
     Indication: DIABETES MELLITUS
     Route: 048
     Dates: start: 20100101, end: 20100219
  2. METFORMIN HCL [Concomitant]
  3. LANTUS [Concomitant]
  4. BYSTOLIC [Concomitant]
  5. CRESTOR [Concomitant]

REACTIONS (2)
  - HEADACHE [None]
  - OEDEMA PERIPHERAL [None]
